FAERS Safety Report 8615184-9 (Version None)
Quarter: 2012Q3

REPORT INFORMATION
  Report Type: 
  Country: None (occurrence: None)
  Receive Date: 20120823
  Receipt Date: 20120817
  Transmission Date: 20120928
  Serious: Yes (Hospitalization, Other)
  Sender: FDA-Public Use
  Company Number: US-INCYTE CORPORATION-2012IN001566

PATIENT
  Sex: Male

DRUGS (11)
  1. JAKAFI [Suspect]
     Dosage: RESTARTED MEDICATION AFTER DISCHARGE
     Route: 048
  2. CARVEDILOL [Concomitant]
     Dosage: 3.125 MG, BID
  3. AVODART [Concomitant]
     Dosage: 0.5 MG, QD
  4. NEPHROVITE [Concomitant]
     Dosage: UNK, QD
  5. JAKAFI [Suspect]
     Dosage: 20 MG, MONDAY, WEDNESDAY, FRIDAY AFTER DIALYSIS
     Dates: end: 20120601
  6. JAKAFI [Suspect]
     Indication: MYELOFIBROSIS
     Dosage: 10 MG, SUNDAY, TUESDAY, THURSDAY
     Dates: end: 20120601
  7. RENAGEL [Concomitant]
     Dosage: 400 MG, QD
  8. PANTOPRAZOLE [Concomitant]
     Dosage: 40 MG, QD
  9. LIPITOR [Concomitant]
     Dosage: 10 MG, QD
  10. CALCIUM WITH VITAMIN D [Concomitant]
     Dosage: UNK, BID
  11. HYDROXYUREA [Concomitant]
     Dosage: 500 MG, BID

REACTIONS (1)
  - LUNG INFECTION [None]
